FAERS Safety Report 9222747 (Version 1)
Quarter: 2013Q2

REPORT INFORMATION
  Report Type: Spontaneous
  Country: US (occurrence: US)
  Receive Date: 20130410
  Receipt Date: 20130410
  Transmission Date: 20140414
  Serious: No
  Sender: FDA-Public Use
  Company Number: US-B.I. PHARMACEUTICALS,INC./RIDGEFIELD-2013-BI-08477BP

PATIENT
  Age: 68 Year
  Sex: Male

DRUGS (9)
  1. TRADJENTA [Suspect]
     Indication: TYPE 2 DIABETES MELLITUS
     Dosage: 5 MG
     Route: 048
     Dates: start: 201302
  2. METFORMIN [Concomitant]
     Indication: TYPE 2 DIABETES MELLITUS
     Dosage: 2000 MG
     Route: 048
  3. ATENOLOL [Concomitant]
     Indication: HYPERTENSION
     Route: 048
  4. LISINOPRIL [Concomitant]
     Indication: HYPERTENSION
     Route: 048
  5. AMLODIPINE [Concomitant]
     Indication: HYPERTENSION
     Route: 048
  6. ASPIRIN [Concomitant]
     Indication: DIABETES PROPHYLAXIS
     Dosage: 81 MG
     Route: 048
  7. LOVASTATIN [Concomitant]
     Indication: HYPERLIPIDAEMIA
     Route: 048
  8. LOVASTATIN [Concomitant]
     Indication: HYPERTRIGLYCERIDAEMIA
  9. GLIPIZIDE [Concomitant]
     Indication: TYPE 2 DIABETES MELLITUS
     Dosage: 20 MG
     Route: 048

REACTIONS (1)
  - Blood glucose increased [Not Recovered/Not Resolved]
